FAERS Safety Report 6204001-2 (Version None)
Quarter: 2009Q2

REPORT INFORMATION
  Report Type: 
  Country: None (occurrence: None)
  Receive Date: 20090521
  Receipt Date: 20090515
  Transmission Date: 20091009
  Serious: Yes (Other)
  Sender: FDA-Public Use
  Company Number: 1000006282

PATIENT
  Age: 19 Year
  Sex: Male

DRUGS (2)
  1. CELEXA [Suspect]
     Indication: ANXIETY
     Dosage: ORAL
     Route: 048
     Dates: start: 20090127, end: 20090131
  2. ADDERALL 10 [Suspect]
     Indication: ATTENTION DEFICIT/HYPERACTIVITY DISORDER
     Dosage: ORAL
     Route: 048
     Dates: start: 20090127, end: 20090131

REACTIONS (3)
  - AGGRESSION [None]
  - AGITATION [None]
  - DRUG INTERACTION [None]
